FAERS Safety Report 15643687 (Version 4)
Quarter: 2019Q1

REPORT INFORMATION
  Report Type: Spontaneous
  Country: US (occurrence: US)
  Receive Date: 20181121
  Receipt Date: 20190211
  Transmission Date: 20190417
  Serious: No
  Sender: FDA-Public Use
  Company Number: US-PFIZER INC-2018480570

PATIENT
  Age: 74 Year
  Sex: Female

DRUGS (1)
  1. MAGNESIUM SULFATE. [Suspect]
     Active Substance: MAGNESIUM SULFATE
     Indication: MUSCLE SPASMS
     Dosage: 500 MG, UNK

REACTIONS (1)
  - Drug ineffective for unapproved indication [Unknown]
